FAERS Safety Report 8621556-9 (Version None)
Quarter: 2012Q3

REPORT INFORMATION
  Report Type: 
  Country: None (occurrence: None)
  Receive Date: 20120825
  Receipt Date: 20120802
  Transmission Date: 20120928
  Serious: No
  Sender: FDA-Public Use
  Company Number: US-009507513-1208USA001743

PATIENT

DRUGS (1)
  1. ZIOPTAN [Suspect]
     Dosage: UNK
     Route: 047

REACTIONS (1)
  - POLLAKIURIA [None]
